FAERS Safety Report 18414839 (Version 1)
Quarter: 2020Q4

REPORT INFORMATION
  Report Type: Spontaneous
  Country: US (occurrence: US)
  Receive Date: 20201022
  Receipt Date: 20201022
  Transmission Date: 20210114
  Serious: Yes (Other)
  Sender: FDA-Public Use
  Company Number: US-PFIZER INC-2020387119

PATIENT

DRUGS (1)
  1. ZOSYN IN GALAXY CONTAINERS [Suspect]
     Active Substance: PIPERACILLIN SODIUM\TAZOBACTAM SODIUM
     Dosage: PIPERACILLIN SODIUM 4 G IN 100ML/TAZOBACTAM SODIUM 500 MG IN 100 ML

REACTIONS (5)
  - Rash erythematous [Recovering/Resolving]
  - Wheezing [Recovering/Resolving]
  - Product complaint [Unknown]
  - Throat tightness [Unknown]
  - Drug hypersensitivity [Unknown]
